FAERS Safety Report 8036568-6 (Version None)
Quarter: 2012Q1

REPORT INFORMATION
  Report Type: 
  Country: None (occurrence: None)
  Receive Date: 20120111
  Receipt Date: 20120102
  Transmission Date: 20120608
  Serious: Yes (Hospitalization)
  Sender: FDA-Public Use
  Company Number: TR-MEDIMMUNE-MEDI-0014390

PATIENT
  Sex: Male
  Weight: 4.7 kg

DRUGS (5)
  1. D-VIT [Concomitant]
     Route: 048
  2. SYNAGIS [Suspect]
     Route: 030
     Dates: start: 20111003, end: 20111205
  3. FERROUS SULFATE TAB [Concomitant]
     Route: 048
  4. SERUM PHYSIOLOGIC [Concomitant]
     Route: 045
  5. PROPRANOLOL HCL [Concomitant]
     Route: 048

REACTIONS (1)
  - BRONCHITIS [None]
